FAERS Safety Report 10687194 (Version 1)
Quarter: 2014Q4

REPORT INFORMATION
  Report Type: Spontaneous
  Country: US (occurrence: None)
  Receive Date: 20141229
  Receipt Date: 20141229
  Transmission Date: 20150529
  Serious: Yes (Hospitalization)
  Sender: FDA-Public Use
  Company Number: 2681260

PATIENT
  Sex: Male

DRUGS (3)
  1. CALCIUM FOLINATE [Suspect]
     Active Substance: LEUCOVORIN CALCIUM
     Indication: INTESTINAL ADENOCARCINOMA
     Dosage: NOT REPORTED, CYCLICAL, UNKNOWN
     Dates: start: 2003, end: 200308
  2. (OXALIPLATIN) [Suspect]
     Active Substance: OXALIPLATIN
     Indication: INTESTINAL ADENOCARCINOMA
     Dosage: NOT REPORTED (CYCLICAL ) UNKNOWN
     Dates: start: 2003, end: 200308
  3. FLUOROURACIL. [Suspect]
     Active Substance: FLUOROURACIL
     Indication: INTESTINAL ADENOCARCINOMA
     Dosage: NOT REPORTED (CYCLICAL) UNKNOWN
     Dates: start: 2003, end: 200308

REACTIONS (3)
  - Febrile neutropenia [None]
  - Malignant neoplasm progression [None]
  - Intestinal adenocarcinoma [None]

NARRATIVE: CASE EVENT DATE: 2003
